FAERS Safety Report 15377273 (Version 3)
Quarter: 2021Q1

REPORT INFORMATION
  Report Type: Spontaneous
  Country: US (occurrence: US)
  Receive Date: 20180913
  Receipt Date: 20210212
  Transmission Date: 20210419
  Serious: No
  Sender: FDA-Public Use
  Company Number: US-PFIZER INC-2018365258

PATIENT
  Age: 37 Year
  Sex: Male

DRUGS (1)
  1. SOMAVERT [Suspect]
     Active Substance: PEGVISOMANT
     Dosage: 10 MG, DAILY (7X A WEEK)

REACTIONS (2)
  - Insulin-like growth factor increased [Unknown]
  - Malaise [Unknown]

NARRATIVE: CASE EVENT DATE: 20180904
